FAERS Safety Report 24060372 (Version 2)
Quarter: 2024Q4

REPORT INFORMATION
  Report Type: Spontaneous
  Country: US (occurrence: US)
  Receive Date: 20240708
  Receipt Date: 20241105
  Transmission Date: 20250114
  Serious: Yes (Other)
  Sender: SANOFI AVENTIS
  Company Number: US-SA-SAC20240705000445

PATIENT
  Age: 77 Year
  Sex: Female

DRUGS (19)
  1. DUPIXENT [Suspect]
     Active Substance: DUPILUMAB
     Indication: Dermatitis atopic
     Dosage: 300 MG, QOW
     Route: 058
  2. GABAPENTIN [Concomitant]
     Active Substance: GABAPENTIN
  3. FLONASE ALLERGY RELIEF [Concomitant]
     Active Substance: FLUTICASONE PROPIONATE
  4. NEXIUM [Concomitant]
     Active Substance: ESOMEPRAZOLE MAGNESIUM
  5. LOSARTAN POTASSIUM [Concomitant]
     Active Substance: LOSARTAN POTASSIUM
  6. SYNJARDY [Concomitant]
     Active Substance: EMPAGLIFLOZIN\METFORMIN HYDROCHLORIDE
  7. FIASP [Concomitant]
     Active Substance: INSULIN ASPART
  8. ZYRTEC [Concomitant]
     Active Substance: CETIRIZINE HYDROCHLORIDE
  9. CELECOXIB [Concomitant]
     Active Substance: CELECOXIB
  10. CARAFATE [Concomitant]
     Active Substance: SUCRALFATE
  11. INDAPAMIDE [Concomitant]
     Active Substance: INDAPAMIDE
  12. TOUJEO MAX [Concomitant]
     Active Substance: INSULIN GLARGINE
  13. COLACE [Concomitant]
     Active Substance: DOCUSATE SODIUM
  14. TRIAMCINOLONE ACETONIDE [Concomitant]
     Active Substance: TRIAMCINOLONE ACETONIDE
  15. PRAVASTATIN [Concomitant]
     Active Substance: PRAVASTATIN
  16. MYRBETRIQ [Concomitant]
     Active Substance: MIRABEGRON
  17. LIDOCAINE [Concomitant]
     Active Substance: LIDOCAINE
  18. ASPIRIN [Concomitant]
     Active Substance: ASPIRIN
  19. CALCIUM\VITAMIN D [Concomitant]
     Active Substance: CALCIUM\VITAMIN D

REACTIONS (10)
  - Diabetes mellitus [Unknown]
  - Initial insomnia [Unknown]
  - Sleep apnoea syndrome [Unknown]
  - Depression [Not Recovered/Not Resolved]
  - Positive airway pressure therapy [Unknown]
  - Back disorder [Unknown]
  - Fall [Unknown]
  - Patella fracture [Not Recovered/Not Resolved]
  - Pruritus [Not Recovered/Not Resolved]
  - Therapeutic response shortened [Unknown]

NARRATIVE: CASE EVENT DATE: 20240919
